FAERS Safety Report 6248813-8 (Version None)
Quarter: 2009Q2

REPORT INFORMATION
  Report Type: 
  Country: None (occurrence: None)
  Receive Date: 20090629
  Receipt Date: 20090616
  Transmission Date: 20091009
  Serious: Yes (Hospitalization)
  Sender: FDA-Public Use
  Company Number: JP-NOVOPROD-288399

PATIENT
  Age: 57 Year
  Sex: Female
  Weight: 65 kg

DRUGS (4)
  1. NOVOLIN R [Suspect]
     Indication: DIABETES MELLITUS
     Dosage: UNK IU, UNK
  2. NOVOLIN R [Suspect]
     Dosage: 15 IU, BID
     Route: 058
     Dates: start: 20090504
  3. NOVOLIN R [Suspect]
     Dosage: 50 IU, QD
     Route: 058
     Dates: end: 20090610
  4. NOVOLIN R [Suspect]
     Dosage: 26+24 IU, QD
     Route: 058
     Dates: start: 20090610

REACTIONS (3)
  - DIABETES MELLITUS INADEQUATE CONTROL [None]
  - FALL [None]
  - PRODUCT COUNTERFEIT [None]
